FAERS Safety Report 5450230-5 (Version None)
Quarter: 2007Q3

REPORT INFORMATION
  Report Type: 
  Country: None (occurrence: None)
  Receive Date: 20070912
  Receipt Date: 20070906
  Transmission Date: 20080115
  Serious: Yes (Hospitalization, Other)
  Sender: FDA-Public Use
  Company Number: US-PFIZER INC-2007056088

PATIENT
  Sex: Male
  Weight: 57.6 kg

DRUGS (2)
  1. CELEBREX [Suspect]
     Indication: PAIN
     Route: 048
  2. CELEBREX [Suspect]
     Indication: BACK PAIN

REACTIONS (3)
  - CARDIOVASCULAR DISORDER [None]
  - CEREBROVASCULAR DISORDER [None]
  - MYOCARDIAL INFARCTION [None]
